FAERS Safety Report 8229518 (Version 3)
Quarter: 2012Q4

REPORT INFORMATION
  Report Type: Report from Study
  Country: PL (occurrence: PL)
  Receive Date: 20111104
  Receipt Date: 20121022
  Transmission Date: 20130627
  Serious: Yes (Hospitalization)
  Sender: FDA-Public Use
  Company Number: PHHO2010PL13093

PATIENT
  Age: 61 Year
  Sex: Female
  Weight: 62 kg

DRUGS (2)
  1. AMN107 [Suspect]
     Indication: CHRONIC MYELOID LEUKAEMIA
     Dosage: 400 mg, BID
     Route: 048
     Dates: start: 20080728
  2. AMN107 [Suspect]
     Dosage: 400 mg, BID
     Route: 048
     Dates: start: 20080808

REACTIONS (6)
  - Ischaemic stroke [Unknown]
  - Hemiplegia [Recovering/Resolving]
  - Hemiparesis [Recovering/Resolving]
  - Carotid arteriosclerosis [Recovering/Resolving]
  - Hypercholesterolaemia [Recovering/Resolving]
  - Arteriosclerosis [Recovering/Resolving]
